FAERS Safety Report 5157683-0 (Version None)
Quarter: 2006Q4

REPORT INFORMATION
  Report Type: 
  Country: None (occurrence: None)
  Receive Date: 20061115
  Receipt Date: 20061106
  Transmission Date: 20070319
  Serious: Yes (Hospitalization)
  Sender: FDA-Public Use
  Company Number: 2006AL003464

PATIENT
  Age: 87 Year
  Sex: Female

DRUGS (11)
  1. IBUPROFEN [Suspect]
     Indication: OSTEOARTHRITIS
     Dosage: 400 MG; TID; PO
     Route: 048
     Dates: start: 19970101, end: 20060829
  2. CALMURID [Concomitant]
  3. CO-AMILOFRUSE [Concomitant]
  4. ACETAMINOPHEN W/ CODEINE [Concomitant]
  5. IRON SULPHATE [Concomitant]
  6. LACTULOSE [Concomitant]
  7. LATANOPROST [Concomitant]
  8. MOVELAT [Concomitant]
  9. NITRAZEPAM [Concomitant]
  10. PANTOPRAZOLE SODIUM [Concomitant]
  11. SENNA [Concomitant]

REACTIONS (3)
  - HAEMATEMESIS [None]
  - HAEMOGLOBIN DECREASED [None]
  - SIMILAR REACTION ON PREVIOUS EXPOSURE TO DRUG [None]
